FAERS Safety Report 25269388 (Version 1)
Quarter: 2025Q2

REPORT INFORMATION
  Report Type: Spontaneous
  Country: GB (occurrence: GB)
  Receive Date: 20250505
  Receipt Date: 20250505
  Transmission Date: 20250716
  Serious: Yes (Other)
  Sender: PFIZER
  Company Number: None

PATIENT
  Age: 58 Year
  Sex: Male
  Weight: 75 kg

DRUGS (1)
  1. PACLITAXEL [Suspect]
     Active Substance: PACLITAXEL
     Indication: Neoplasm malignant
     Dosage: 270 MG, EVERY 3 WEEKS
     Route: 042
     Dates: start: 20250205

REACTIONS (2)
  - Dyspnoea [Recovered/Resolved]
  - Hot flush [Recovered/Resolved]

NARRATIVE: CASE EVENT DATE: 20250205
